FAERS Safety Report 23716070 (Version 5)
Quarter: 2025Q4

REPORT INFORMATION
  Report Type: Spontaneous
  Country: EU (occurrence: EU)
  Receive Date: 20240408
  Receipt Date: 20251218
  Transmission Date: 20260117
  Serious: Yes (Death, Life-Threatening, Hospitalization, Other)
  Sender: TEVA
  Company Number: EU-ELERTE-202400010

PATIENT
  Age: 34 Year
  Sex: Male
  Weight: 79 kg

DRUGS (42)
  1. ALPRAZOLAM [Interacting]
     Active Substance: ALPRAZOLAM
     Indication: Psychiatric symptom
     Dosage: UNK
     Route: 048
  2. ACETAMINOPHEN\CODEINE PHOSPHATE [Interacting]
     Active Substance: ACETAMINOPHEN\CODEINE PHOSPHATE
     Indication: Product used for unknown indication
     Route: 048
     Dates: start: 2016, end: 2016
  3. FENTANYL [Interacting]
     Active Substance: FENTANYL
     Indication: Back pain
     Dosage: FIRST ADMIN DATE: 2016-07-26, LAST ADMIN DATE: 2016
     Route: 062
  4. PAROXETINE HYDROCHLORIDE [Interacting]
     Active Substance: PAROXETINE HYDROCHLORIDE
     Indication: Back pain
     Dosage: EVERY 0.33 DAY UNITS IN INTERVAL., PAROXETINE 20 MG/UNK THERAPY START DATE: //2016 THERAPY END DA...
     Route: 048
     Dates: start: 20160829, end: 20160908
  5. TEMAZEPAM [Interacting]
     Active Substance: TEMAZEPAM
     Indication: Product used for unknown indication
     Route: 065
  6. CLOTIAZEPAM [Interacting]
     Active Substance: CLOTIAZEPAM
     Indication: Product used for unknown indication
     Dosage: 3 TABLETS PER DAY FOR A MONTH: FIRST ADMIN DATE: 2016-08-30, LAST ADMIN DATE: 2016
     Route: 048
  7. SKENAN [Suspect]
     Active Substance: MORPHINE SULFATE
     Indication: Product used for unknown indication
     Dosage: 60 MILLIGRAM (AT ONE CAPSULE IN THE MORNING AND EVENING), FIRST ADMIN DATE: 2016-08-17, LAST ADMI...
     Route: 048
  8. ARTANE [Interacting]
     Active Substance: TRIHEXYPHENIDYL HYDROCHLORIDE
     Indication: Product used for unknown indication
     Dosage: UNK
     Route: 048
     Dates: start: 20160810, end: 20160908
  9. CLONAZEPAM [Interacting]
     Active Substance: CLONAZEPAM
     Indication: Product used for unknown indication
     Dosage: 10 MILLIGRAM: CLONAZEPAM ARROW
     Route: 065
  10. VALIUM [Interacting]
     Active Substance: DIAZEPAM
     Indication: Psychiatric symptom
     Dosage: UNK
     Route: 048
     Dates: start: 20160902, end: 20160905
  11. MIANSERIN [Interacting]
     Active Substance: MIANSERIN
     Indication: Depression
     Dosage: THERAPY START DATE: //2016?THERAPY END DATE: //2016. ?THE DOCTOR PRESCRIBED HIM OVER A PERIOD BET...
     Route: 048
     Dates: start: 2016, end: 2016
  12. THIOCOLCHICOSIDE [Interacting]
     Active Substance: THIOCOLCHICOSIDE
     Indication: Product used for unknown indication
     Dosage: UNK
     Route: 048
     Dates: start: 2016, end: 2016
  13. OXYCONTIN [Interacting]
     Active Substance: OXYCODONE HYDROCHLORIDE
     Indication: Product used for unknown indication
     Route: 065
  14. BROMAZEPAM [Interacting]
     Active Substance: BROMAZEPAM
     Indication: Product used for unknown indication
     Dosage: 3 TIMES DAILY
     Route: 065
  15. NIFUROXAZIDE [Interacting]
     Active Substance: NIFUROXAZIDE
     Indication: Product used for unknown indication
     Dosage: UNK
     Route: 048
     Dates: start: 2016, end: 2016
  16. AMISULPRIDE [Concomitant]
     Active Substance: AMISULPRIDE
     Indication: Psychiatric symptom
     Dosage: UNK
     Route: 048
  17. PAROXETINE MESYLATE [Interacting]
     Active Substance: PAROXETINE MESYLATE
     Indication: Back pain
     Dosage: PAROXETINE 20 MG/UNK, THERAPY START DATE: //2016, THERAPY END DATE: //2016:^ SCORED FILM-COATED T...
     Route: 048
     Dates: start: 20160817, end: 20160908
  18. ARTANE [Interacting]
     Active Substance: TRIHEXYPHENIDYL HYDROCHLORIDE
     Indication: Depression
     Dosage: 5 MG
     Route: 048
     Dates: start: 20160810, end: 20160908
  19. ETIFOXINE [Interacting]
     Active Substance: ETIFOXINE
     Indication: Product used for unknown indication
     Dosage: 20 MG
     Route: 048
     Dates: start: 20160810, end: 20160908
  20. SKENAN [Interacting]
     Active Substance: MORPHINE SULFATE
     Indication: Back pain
     Dosage: 60 MG
     Route: 048
     Dates: start: 20160902, end: 20160905
  21. SKENAN [Interacting]
     Active Substance: MORPHINE SULFATE
     Indication: Back pain
     Dosage: UNK
     Route: 048
     Dates: start: 201607, end: 20160908
  22. CLOTIAZEPAM [Interacting]
     Active Substance: CLOTIAZEPAM
     Indication: Product used for unknown indication
     Dosage: 3 TABLETS PER DAY FOR A MONTH: FIRST ADMIN DATE: 2016-08-30, LAST  ADMIN DATE: 2016
     Route: 048
  23. SKENAN [Interacting]
     Active Substance: MORPHINE SULFATE
     Indication: Back pain
     Dosage: 1 DOSAGE FORM, 1/DAY ?THERAPY START AND END DATE //2016: FIRST ADMIN DATE: 2016-07, LAST ADMIN DA...
     Route: 048
  24. ACETAMINOPHEN [Interacting]
     Active Substance: ACETAMINOPHEN
     Indication: Back pain
     Dosage: UNK
     Route: 065
     Dates: start: 2016, end: 2016
  25. PRAZEPAM [Interacting]
     Active Substance: PRAZEPAM
     Indication: Product used for unknown indication
     Dosage: LAST ADMIN DATE 2016, FIRST ADMIN DATE: 2016-09-02
     Route: 048
  26. CODEINE PHOSPHATE\IBUPROFEN [Interacting]
     Active Substance: CODEINE PHOSPHATE\IBUPROFEN
     Indication: Back pain
     Dosage: 1 DOSAGE FORM, THERAPY START DATE:2016-09-02, THERAPY END DATE:2016
     Route: 048
  27. KETAMINE [Interacting]
     Active Substance: KETAMINE
     Indication: Back pain
     Dosage: UNK?THERAPY START DATE: //2016?THERAPY END DATE: //2016
     Route: 065
     Dates: start: 2016, end: 2016
  28. COCAINE [Interacting]
     Active Substance: COCAINE
     Indication: Product used for unknown indication
     Route: 065
  29. NORDAZEPAM [Interacting]
     Active Substance: NORDAZEPAM
     Indication: Product used for unknown indication
     Route: 065
  30. OXAZEPAM [Interacting]
     Active Substance: OXAZEPAM
     Indication: Depression
     Dosage: UNK
     Route: 048
  31. NAFRONYL [Interacting]
     Active Substance: NAFRONYL
     Indication: Product used for unknown indication
     Dosage: UNK
     Route: 065
  32. ACETAMINOPHEN\TRAMADOL [Interacting]
     Active Substance: ACETAMINOPHEN\TRAMADOL
     Indication: Product used for unknown indication
     Dosage: TRAMADOL/PARACETAMOL EG LABO 37,5MG/325 MG
     Route: 065
  33. ZOPICLONE [Interacting]
     Active Substance: ZOPICLONE
     Indication: Depression
     Dosage: UNK
     Route: 048
  34. TRAMADOL HYDROCHLORIDE [Interacting]
     Active Substance: TRAMADOL HYDROCHLORIDE
     Indication: Back pain
     Dosage: UNK THERAPY START DATE: //2016 THERAPY END DATE: //2016, PRESCRIBED HIM OVER A PERIOD BETWEEN 28-...
     Route: 048
  35. MEPHENESIN [Interacting]
     Active Substance: MEPHENESIN
     Indication: Product used for unknown indication
     Route: 065
  36. QUETIAPINE [Interacting]
     Active Substance: QUETIAPINE
     Indication: Product used for unknown indication
     Dosage: 300 MILLIGRAM
     Route: 065
  37. QUETIAPINE [Interacting]
     Active Substance: QUETIAPINE
     Indication: Product used for unknown indication
     Dosage: 500 MG
     Route: 065
  38. QUETIAPINE [Interacting]
     Active Substance: QUETIAPINE
     Indication: Product used for unknown indication
     Dosage: UNK, FIRST ADMIN DATE: 2016-08-30, LAST ADMIN DATE: 2016
     Route: 048
  39. IBUPROFEN [Interacting]
     Active Substance: IBUPROFEN
     Indication: Back pain
     Dosage: UNK THERAPY START DATE //2016 THERAPY END DATE: //2016
     Route: 048
     Dates: start: 2016, end: 2016
  40. VALIUM [Interacting]
     Active Substance: DIAZEPAM
     Indication: Product used for unknown indication
     Dosage: UNK: FIRST ADMIN DATE: 2016-09-05, LAST ADMIN DATE: 2016
     Route: 048
  41. QUETIAPINE FUMARATE [Interacting]
     Active Substance: QUETIAPINE FUMARATE
     Indication: Product used for unknown indication
     Dosage: 1 TABLET AT NIGHT FOR ONE MONTH: XEROQUEL LP, FIRST ADMIN DATE: 2016-08-30, LAST ADMIN DATE 2016
     Route: 048
  42. CLOBAZAM [Interacting]
     Active Substance: CLOBAZAM
     Indication: Product used for unknown indication
     Dosage: UNK: SCORED TABLET
     Route: 048
     Dates: start: 20160824, end: 20160908

REACTIONS (61)
  - Pulmonary oedema [Fatal]
  - Accidental poisoning [Fatal]
  - Cardiomyopathy [Fatal]
  - Hepatic cytolysis [Fatal]
  - Myocarditis [Fatal]
  - Encephalopathy [Fatal]
  - Myocardial infarction [Fatal]
  - Respiratory depression [Fatal]
  - Coma [Fatal]
  - Overdose [Fatal]
  - Hepatitis acute [Fatal]
  - Somnolence [Fatal]
  - Labelled drug-drug interaction issue [Fatal]
  - Cardiac disorder [Fatal]
  - Coronary artery stenosis [Fatal]
  - Cardio-respiratory arrest [Fatal]
  - Jaundice [Fatal]
  - Monocytosis [Unknown]
  - Confusional state [Fatal]
  - Cholecystitis infective [Fatal]
  - Pancreas infection [Fatal]
  - Hyperglycaemia [Fatal]
  - White blood cell count increased [Fatal]
  - Coronary artery stenosis [Fatal]
  - Drug screen false positive [Fatal]
  - Hepatic enzyme increased [Fatal]
  - Inflammation [Unknown]
  - Synovitis [Recovered/Resolved]
  - Toxicity to various agents [Fatal]
  - Pulmonary oedema [Fatal]
  - Respiratory depression [Fatal]
  - Hepatic cytolysis [Fatal]
  - Hypersomnia [Unknown]
  - Leukocytosis [Unknown]
  - Cardiomyopathy [Fatal]
  - Pancreatic injury [Unknown]
  - Prescribed overdose [Fatal]
  - Drug abuse [Fatal]
  - Toxicity to various agents [Fatal]
  - Hepatic failure [Unknown]
  - Product prescribing issue [Unknown]
  - Logorrhoea [Unknown]
  - Thirst [Unknown]
  - Asteatosis [Unknown]
  - Aspiration [Fatal]
  - Liver injury [Unknown]
  - Necrosis [Fatal]
  - Aggression [Unknown]
  - Stenosis [Fatal]
  - Acute pulmonary oedema [Fatal]
  - Arrhythmia [Unknown]
  - Gallbladder injury [Fatal]
  - Ketosis [Fatal]
  - Coronary artery disease [Unknown]
  - Nephropathy toxic [Unknown]
  - Bladder injury [Unknown]
  - Hypotension [Unknown]
  - Panic attack [Unknown]
  - Intentional self-injury [Fatal]
  - Hepatobiliary disease [Unknown]
  - Acute pulmonary oedema [Fatal]

NARRATIVE: CASE EVENT DATE: 20160101
